FAERS Safety Report 9271279 (Version 1)
Quarter: 2013Q2

REPORT INFORMATION
  Report Type: Spontaneous
  Country: US (occurrence: US)
  Receive Date: 20130506
  Receipt Date: 20130506
  Transmission Date: 20140414
  Serious: Yes (Hospitalization)
  Sender: FDA-Public Use
  Company Number: US-AMGEN-USASP2013017344

PATIENT
  Age: 76 Year
  Sex: Female
  Weight: 45.26 kg

DRUGS (10)
  1. PROLIA [Suspect]
     Indication: OSTEOPOROSIS POSTMENOPAUSAL
     Dosage: 60 MG, Q6MO
     Route: 058
     Dates: start: 20120829, end: 20130306
  2. PROLIA [Suspect]
  3. PREMARIN [Concomitant]
     Dosage: 1 G, EVERY 5 DAYS
     Route: 067
  4. CALCIUM CITRATE + D [Concomitant]
  5. CO Q 10                            /00517201/ [Concomitant]
     Dosage: 100 MG, QD
  6. CALCIMATE [Concomitant]
     Dosage: UNK UNK, BID
  7. OCULAR FORMULA [Concomitant]
     Dosage: UNK UNK, QD
  8. RANITIDINE HCL [Concomitant]
     Dosage: 300 MG, QD
  9. B-12 [Concomitant]
     Dosage: 1000 MUG, AS NECESSARY
  10. VITAMIN D3 [Suspect]

REACTIONS (1)
  - Dehydration [Not Recovered/Not Resolved]
